FAERS Safety Report 7726330-3 (Version None)
Quarter: 2011Q3

REPORT INFORMATION
  Report Type: 
  Country: None (occurrence: None)
  Receive Date: 20110902
  Receipt Date: 20110901
  Transmission Date: 20111222
  Serious: Yes (Other)
  Sender: FDA-Public Use
  Company Number: ZA-PFIZER INC-2011205333

PATIENT
  Sex: Male

DRUGS (4)
  1. ZOLOFT [Suspect]
     Dosage: 25 MG, 1X/DAY (DAILY)
     Route: 048
     Dates: start: 20110101
  2. CRESTOR [Concomitant]
     Dosage: 40 MG, 1X/DAY (DAILY)
     Route: 048
  3. BISOCOR [Concomitant]
     Dosage: 5 MG, 1X/DAY(DAILY)
     Route: 048
  4. EZETIMIBE [Concomitant]
     Dosage: 10 MG, 1X/DAY (DAILY)
     Route: 048

REACTIONS (1)
  - ATRIAL FIBRILLATION [None]
